FAERS Safety Report 4997761-X (Version None)
Quarter: 2006Q2

REPORT INFORMATION
  Report Type: 
  Country: None (occurrence: None)
  Receive Date: 20060505
  Receipt Date: 20060424
  Transmission Date: 20061013
  Serious: Yes (Death)
  Sender: FDA-Public Use
  Company Number: A-US2005-11455

PATIENT
  Age: 68 Year
  Sex: Male

DRUGS (15)
  1. TRACLEER [Suspect]
     Indication: PULMONARY HYPERTENSION
     Dosage: SEE IMAGE
     Dates: end: 20051201
  2. TRACLEER [Suspect]
     Indication: PULMONARY HYPERTENSION
     Dosage: SEE IMAGE
     Dates: start: 20040101
  3. TOPROL-XL [Concomitant]
  4. ZESTRIL [Concomitant]
  5. PRILOSEC [Concomitant]
  6. FOSAMAX [Concomitant]
  7. BACTRIM [Concomitant]
  8. ASPIRIN [Concomitant]
  9. ZETIA [Concomitant]
  10. FLOMAX (MORNIFLUMATE) [Concomitant]
  11. ALPRAZOLAM [Concomitant]
  12. ZOLOFT [Concomitant]
  13. CALCIUM (CALCIUM) [Concomitant]
  14. ASCORBIC ACID [Concomitant]
  15. OMEGA-3 (OMEGA-3 TRIGLYCERIDES) [Concomitant]

REACTIONS (3)
  - ALANINE AMINOTRANSFERASE INCREASED [None]
  - ASPARTATE AMINOTRANSFERASE INCREASED [None]
  - BLOOD ALKALINE PHOSPHATASE INCREASED [None]
